FAERS Safety Report 14964289 (Version 2)
Quarter: 2018Q3

REPORT INFORMATION
  Report Type: Report from Study
  Country: US (occurrence: US)
  Receive Date: 20180601
  Receipt Date: 20180716
  Transmission Date: 20181010
  Serious: Yes (Hospitalization, Other)
  Sender: FDA-Public Use
  Company Number: US-GILEAD-2018-0341418

PATIENT
  Age: 58 Year
  Sex: Female

DRUGS (31)
  1. FLONASE                            /00908302/ [Concomitant]
     Active Substance: MOMETASONE FUROATE
  2. K?TAB [Concomitant]
     Active Substance: POTASSIUM CHLORIDE
  3. LORATADINE. [Concomitant]
     Active Substance: LORATADINE
  4. ONDANSETRON [Concomitant]
     Active Substance: ONDANSETRON
  5. LOMOTIL [Concomitant]
     Active Substance: ATROPINE SULFATE\DIPHENOXYLATE HYDROCHLORIDE
  6. HYDROXYZINE [Concomitant]
     Active Substance: HYDROXYZINE HYDROCHLORIDE
  7. HALDOL [Concomitant]
     Active Substance: HALOPERIDOL
  8. TRAMADOL. [Concomitant]
     Active Substance: TRAMADOL
  9. MARINOL                            /00003301/ [Concomitant]
     Active Substance: ALLOPURINOL
  10. PEPCID                             /00305201/ [Concomitant]
     Active Substance: ALUMINUM HYDROXIDE\MAGNESIUM CARBONATE
  11. HALOPERIDOL. [Concomitant]
     Active Substance: HALOPERIDOL
  12. VENTOLIN [Concomitant]
     Active Substance: ALBUTEROL SULFATE
  13. FAMOTIDINE. [Concomitant]
     Active Substance: FAMOTIDINE
  14. ADVIL (MEFENAMIC ACID) [Concomitant]
     Active Substance: MEFENAMIC ACID
  15. AMBRISENTAN [Suspect]
     Active Substance: AMBRISENTAN
     Indication: PULMONARY ARTERIAL HYPERTENSION
     Dosage: 5 MG, QD
     Route: 048
     Dates: start: 201712, end: 20180409
  16. SYMBICORT [Concomitant]
     Active Substance: BUDESONIDE\FORMOTEROL FUMARATE DIHYDRATE
  17. OXYGEN. [Concomitant]
     Active Substance: OXYGEN
  18. DIGOXIN. [Concomitant]
     Active Substance: DIGOXIN
  19. VITAMIN D2 [Concomitant]
     Active Substance: ERGOCALCIFEROL
  20. VELETRI [Concomitant]
     Active Substance: EPOPROSTENOL
  21. MIDODRINE [Concomitant]
     Active Substance: MIDODRINE
  22. IBUPROFEN. [Concomitant]
     Active Substance: IBUPROFEN
  23. TORSEMIDE. [Concomitant]
     Active Substance: TORSEMIDE
  24. METOCLOPRAMIDE. [Concomitant]
     Active Substance: METOCLOPRAMIDE
  25. REMERON [Concomitant]
     Active Substance: MIRTAZAPINE
  26. ZOFRAN [Concomitant]
     Active Substance: ONDANSETRON HYDROCHLORIDE
  27. ALBUTEROL                          /00139501/ [Concomitant]
     Active Substance: ALBUTEROL
  28. BENZONATATE. [Concomitant]
     Active Substance: BENZONATATE
  29. CLARITIN [Concomitant]
     Active Substance: LORATADINE
  30. COMBIVENT [Concomitant]
     Active Substance: ALBUTEROL SULFATE\IPRATROPIUM BROMIDE
  31. DEMADEX [Concomitant]
     Active Substance: TORSEMIDE

REACTIONS (2)
  - Respiratory failure [Unknown]
  - Hypoxia [Unknown]
